FAERS Safety Report 5228451-6 (Version None)
Quarter: 2007Q1

REPORT INFORMATION
  Report Type: 
  Country: None (occurrence: None)
  Receive Date: 20070131
  Receipt Date: 20070115
  Transmission Date: 20070707
  Serious: Yes (Disabling, Other)
  Sender: FDA-Public Use
  Company Number: 2007EU000127

PATIENT
  Age: 62 Year
  Sex: Female
  Weight: 97 kg

DRUGS (5)
  1. VESICARE [Suspect]
     Dosage: 5 MG, UID/QD, ORAL
     Route: 048
     Dates: start: 20060803, end: 20060807
  2. ADALAT CC [Concomitant]
  3. DOXAZOSIN (DOXAZOSIN) [Concomitant]
  4. IRBESARTAN [Concomitant]
  5. METFORMIN (METFORMIN HYDROCHLORIDE) [Concomitant]

REACTIONS (1)
  - GOUT [None]
